FAERS Safety Report 8449781-0 (Version None)
Quarter: 2012Q2

REPORT INFORMATION
  Report Type: 
  Country: None (occurrence: None)
  Receive Date: 20120620
  Receipt Date: 20120612
  Transmission Date: 20120825
  Serious: Yes (Hospitalization)
  Sender: FDA-Public Use
  Company Number: US-BAYER-2012-014584

PATIENT
  Age: 30 Year
  Sex: Female
  Weight: 84 kg

DRUGS (11)
  1. POTASSIUM ACETATE [Concomitant]
     Dosage: UNK
     Dates: start: 20050101
  2. YAZ [Suspect]
     Dosage: UNK
     Dates: start: 20030101, end: 20080101
  3. DIURETICS [Concomitant]
     Dosage: UNK
     Dates: start: 20050101
  4. OMNICEF [Concomitant]
  5. NSAID'S [Concomitant]
     Dosage: UNK
     Dates: start: 20050101
  6. TEQUIN [Concomitant]
  7. YASMIN [Suspect]
     Dosage: UNK
     Dates: start: 20030101, end: 20080101
  8. NSAID'S [Concomitant]
     Dosage: UNK
     Dates: start: 20020101
  9. MYTUSSIN [Concomitant]
  10. ALPRAZOLAM [Concomitant]
  11. IBUPROFEN [Concomitant]

REACTIONS (6)
  - CHOLECYSTITIS CHRONIC [None]
  - INJURY [None]
  - GALLBLADDER DISORDER [None]
  - EMOTIONAL DISTRESS [None]
  - ANXIETY [None]
  - PAIN [None]
